FAERS Safety Report 5312342-6 (Version None)
Quarter: 2007Q2

REPORT INFORMATION
  Report Type: 
  Country: None (occurrence: None)
  Receive Date: 20070430
  Receipt Date: 20070327
  Transmission Date: 20071010
  Serious: No
  Sender: FDA-Public Use
  Company Number: 2006UW24810

PATIENT
  Age: 53 Year
  Sex: Female
  Weight: 68.2 kg

DRUGS (2)
  1. NEXIUM [Suspect]
     Route: 048
  2. NEXIUM [Suspect]
     Route: 042

REACTIONS (2)
  - DYSPEPSIA [None]
  - NASAL CONGESTION [None]
